FAERS Safety Report 13897412 (Version 1)
Quarter: 2017Q3

REPORT INFORMATION
  Report Type: Spontaneous
  Country: NL (occurrence: NL)
  Receive Date: 20170823
  Receipt Date: 20170823
  Transmission Date: 20171127
  Serious: Yes (Other)
  Sender: FDA-Public Use
  Company Number: NL-TEVA-799198ROM

PATIENT
  Age: 69 Year
  Sex: Male
  Weight: 89 kg

DRUGS (4)
  1. DILTIAZEM 90MG [Concomitant]
     Dosage: 90 MILLIGRAM DAILY;
     Route: 048
  2. NEOTIGASON [Suspect]
     Active Substance: ACITRETIN
     Indication: HAND DERMATITIS
     Dosage: 10 MILLIGRAM DAILY;
     Route: 048
     Dates: start: 20170717, end: 20170723
  3. LOSARTAN 50MG [Concomitant]
     Active Substance: LOSARTAN
     Dosage: 50 MILLIGRAM DAILY;
     Route: 048
  4. CARBASALAT CALCIUM 100 MG [Concomitant]
     Dosage: 100 MILLIGRAM DAILY;
     Route: 048

REACTIONS (2)
  - Exercise tolerance decreased [Recovering/Resolving]
  - Arrhythmia [Recovering/Resolving]

NARRATIVE: CASE EVENT DATE: 20170719
